FAERS Safety Report 4676694-2 (Version None)
Quarter: 2005Q2

REPORT INFORMATION
  Report Type: 
  Country: None (occurrence: None)
  Receive Date: 20050527
  Receipt Date: 20050518
  Transmission Date: 20051028
  Serious: Yes (Hospitalization, Other)
  Sender: FDA-Public Use
  Company Number: 2005UW07707

PATIENT
  Age: 767 Month
  Sex: Female
  Weight: 58 kg

DRUGS (5)
  1. CRESTOR [Suspect]
     Indication: HYPERCHOLESTEROLAEMIA
     Route: 048
     Dates: start: 20040403, end: 20050503
  2. PLAVIX [Concomitant]
     Indication: PROPHYLAXIS
     Route: 048
     Dates: start: 20040216
  3. COZAAR [Concomitant]
     Indication: HYPERTENSION
     Route: 048
     Dates: start: 20040216
  4. TENORMIN [Concomitant]
     Indication: HYPERTENSION
     Route: 048
     Dates: start: 20050216
  5. ASPIRIN [Concomitant]

REACTIONS (9)
  - ABDOMINAL PAIN [None]
  - ARTHRALGIA [None]
  - ASTHENIA [None]
  - HAEMATURIA [None]
  - PROTEINURIA [None]
  - PYREXIA [None]
  - RASH [None]
  - RHABDOMYOLYSIS [None]
  - VOMITING [None]
